FAERS Safety Report 16278478 (Version 1)
Quarter: 2019Q2

REPORT INFORMATION
  Report Type: Spontaneous
  Country: US (occurrence: US)
  Receive Date: 20190506
  Receipt Date: 20190506
  Transmission Date: 20190711
  Serious: No
  Sender: FDA-Public Use
  Company Number: US-JUBILANT PHARMA LTD-2018US001159

PATIENT
  Age: 43 Year
  Sex: Female

DRUGS (2)
  1. DRAXIMAGE MDP-25 [Suspect]
     Active Substance: TECHNETIUM TC-99M MEDRONATE
     Indication: BONE SCAN
     Dosage: 20 MCI, SINGLE DOSE
     Dates: start: 20181022, end: 20181022
  2. TRAMADOL. [Concomitant]
     Active Substance: TRAMADOL
     Indication: PRODUCT USED FOR UNKNOWN INDICATION
     Dosage: 50 MG, AS NECESSARY

REACTIONS (1)
  - Drug ineffective [Not Recovered/Not Resolved]

NARRATIVE: CASE EVENT DATE: 20181022
